FAERS Safety Report 7539170-5 (Version None)
Quarter: 2011Q2

REPORT INFORMATION
  Report Type: 
  Country: None (occurrence: None)
  Receive Date: 20110610
  Receipt Date: 20030219
  Transmission Date: 20111010
  Serious: Yes (Death)
  Sender: FDA-Public Use
  Company Number: PHHO2003JP02503

PATIENT
  Sex: Male
  Weight: 69 kg

DRUGS (1)
  1. DIOVAN [Suspect]
     Dosage: 80 MG, UNK
     Route: 048
     Dates: start: 20021120

REACTIONS (3)
  - MALAISE [None]
  - DIZZINESS [None]
  - DEATH [None]
